FAERS Safety Report 14177049 (Version 1)
Quarter: 2017Q4

REPORT INFORMATION
  Report Type: Spontaneous
  Country: RU (occurrence: RU)
  Receive Date: 20171110
  Receipt Date: 20171110
  Transmission Date: 20180321
  Serious: Yes (Hospitalization)
  Sender: FDA-Public Use
  Company Number: RU-ASTRAZENECA-2017SF13037

PATIENT
  Age: 72 Year
  Sex: Female
  Weight: 54 kg

DRUGS (6)
  1. THROMBOASS [Concomitant]
     Active Substance: ASPIRIN
  2. L- THYROXIN [Concomitant]
  3. LIPRIMAR [Concomitant]
     Active Substance: ATORVASTATIN CALCIUM
  4. BRILINTA [Suspect]
     Active Substance: TICAGRELOR
     Indication: ANGINA UNSTABLE
     Route: 048
     Dates: start: 20161204
  5. CARVEDILOL. [Concomitant]
     Active Substance: CARVEDILOL
  6. BRILINTA [Suspect]
     Active Substance: TICAGRELOR
     Indication: STENT PLACEMENT
     Route: 048
     Dates: start: 20161204

REACTIONS (1)
  - Chest pain [Recovered/Resolved]

NARRATIVE: CASE EVENT DATE: 20171022
